FAERS Safety Report 21866303 (Version 2)
Quarter: 2023Q2

REPORT INFORMATION
  Report Type: Report from Study
  Country: US (occurrence: US)
  Receive Date: 20230116
  Receipt Date: 20230411
  Transmission Date: 20230721
  Serious: No
  Sender: FDA-Public Use
  Company Number: US-ABBVIE-4240100

PATIENT
  Age: 58 Year
  Sex: Female
  Weight: 79.38 kg

DRUGS (1)
  1. HUMIRA [Suspect]
     Active Substance: ADALIMUMAB
     Indication: Psoriatic arthropathy
     Dosage: CITRATE FREE?FORM STRENGTH: 40?FORM STRENGTH UNITS: MG
     Route: 058

REACTIONS (5)
  - Injection site reaction [Recovered/Resolved]
  - Injection site swelling [Recovering/Resolving]
  - Headache [Recovered/Resolved]
  - Injection site erythema [Recovering/Resolving]
  - Injection site pruritus [Recovering/Resolving]

NARRATIVE: CASE EVENT DATE: 20221205
